FAERS Safety Report 7974095-2 (Version None)
Quarter: 2011Q4

REPORT INFORMATION
  Report Type: 
  Country: None (occurrence: None)
  Receive Date: 20111213
  Receipt Date: 20111206
  Transmission Date: 20120403
  Serious: Yes (Hospitalization)
  Sender: FDA-Public Use
  Company Number: US-CELGENEUS-163-21880-11090115

PATIENT
  Sex: Female
  Weight: 103.51 kg

DRUGS (17)
  1. IRON [Concomitant]
     Route: 065
  2. PREDNISONE TAB [Concomitant]
     Route: 065
  3. REVLIMID [Suspect]
     Dosage: 5 MILLIGRAM
     Route: 048
     Dates: start: 20110802
  4. GLUCOPHAGE [Concomitant]
     Route: 065
  5. ISOSORB [Concomitant]
     Route: 065
  6. FUROSEMIDE [Concomitant]
     Route: 065
  7. LOVAZA [Concomitant]
     Route: 065
  8. ARANESP [Concomitant]
     Route: 065
  9. CRESTOR [Concomitant]
     Route: 065
  10. PLENDIL [Concomitant]
     Route: 065
  11. PROTONIX [Concomitant]
     Route: 065
  12. LANTUS [Concomitant]
     Route: 065
  13. HUMALOG [Concomitant]
     Route: 065
  14. ASPIRIN [Concomitant]
     Route: 065
  15. COMPAZINE [Concomitant]
     Route: 065
  16. B COMPLETE [Concomitant]
     Route: 065
  17. LISINOPRIL [Concomitant]
     Route: 065

REACTIONS (1)
  - HEART RATE IRREGULAR [None]
